FAERS Safety Report 21327762 (Version 1)
Quarter: 2022Q3

REPORT INFORMATION
  Report Type: Report from Study
  Country: CA (occurrence: CA)
  Receive Date: 20220913
  Receipt Date: 20220913
  Transmission Date: 20221026
  Serious: Yes (Hospitalization)
  Sender: FDA-Public Use
  Company Number: CA-JNJFOC-20220129198

PATIENT
  Age: 88 Year
  Sex: Male

DRUGS (28)
  1. ABIRATERONE ACETATE [Suspect]
     Active Substance: ABIRATERONE ACETATE
     Indication: Prostate cancer
     Route: 048
     Dates: start: 20190221
  2. PREDNISONE [Suspect]
     Active Substance: PREDNISONE
     Indication: Prostate cancer
     Route: 065
     Dates: start: 20190221
  3. PREDNISONE [Suspect]
     Active Substance: PREDNISONE
     Route: 065
     Dates: start: 20220330
  4. ALTEPLASE [Concomitant]
     Active Substance: ALTEPLASE
     Indication: Cerebrovascular accident
     Route: 065
     Dates: start: 20190727, end: 20190727
  5. APIXABAN [Concomitant]
     Active Substance: APIXABAN
     Indication: Cerebrovascular accident
     Route: 065
     Dates: start: 20190731
  6. TYLENOL [Concomitant]
     Active Substance: ACETAMINOPHEN
     Indication: Product used for unknown indication
     Route: 065
     Dates: start: 20190304, end: 201903
  7. TYLENOL [Concomitant]
     Active Substance: ACETAMINOPHEN
     Route: 065
     Dates: start: 20190705
  8. SENOKOT [Concomitant]
     Active Substance: SENNOSIDES
     Indication: Product used for unknown indication
     Route: 065
     Dates: start: 20190719
  9. POLYETHYLENE GLYCOL 3350 [Concomitant]
     Active Substance: POLYETHYLENE GLYCOL 3350
     Indication: Product used for unknown indication
     Route: 065
     Dates: start: 20190719
  10. PIPERACILLIN SODIUM\TAZOBACTAM SODIUM [Concomitant]
     Active Substance: PIPERACILLIN SODIUM\TAZOBACTAM SODIUM
     Indication: Urosepsis
     Route: 065
     Dates: start: 20200510, end: 202005
  11. MACROBID [Concomitant]
     Active Substance: NITROFURANTOIN\NITROFURANTOIN MONOHYDRATE
     Indication: Product used for unknown indication
     Route: 065
     Dates: start: 20200503, end: 20200510
  12. CEFTRIAXONE [Concomitant]
     Active Substance: CEFTRIAXONE
     Indication: Urinary tract infection
     Route: 065
     Dates: start: 20210117, end: 20210118
  13. GENTAMICIN [Concomitant]
     Active Substance: GENTAMICIN
     Indication: Urine output decreased
     Route: 065
     Dates: start: 20210117, end: 20210117
  14. GENTAMICIN [Concomitant]
     Active Substance: GENTAMICIN
     Indication: Urinary tract infection
  15. CIPROFLOXACIN [Concomitant]
     Active Substance: CIPROFLOXACIN
     Indication: Urine output decreased
     Route: 065
     Dates: start: 20210118, end: 20210201
  16. CIPROFLOXACIN [Concomitant]
     Active Substance: CIPROFLOXACIN
     Indication: Urinary tract infection
     Route: 065
     Dates: start: 20210809, end: 20210830
  17. CIPROFLOXACIN [Concomitant]
     Active Substance: CIPROFLOXACIN
     Indication: Penile pain
     Route: 065
     Dates: start: 202110, end: 202110
  18. CIPROFLOXACIN [Concomitant]
     Active Substance: CIPROFLOXACIN
     Indication: Prostatitis
  19. HYDROMORPHONE [Concomitant]
     Active Substance: HYDROMORPHONE
     Indication: Urine output decreased
     Route: 065
     Dates: start: 20210117
  20. BUTYLSCOPOLAMINE BROMIDE [Concomitant]
     Active Substance: BUTYLSCOPOLAMINE BROMIDE
     Indication: Penile pain
     Route: 065
     Dates: start: 20210809, end: 20210809
  21. MIRABEGRON [Concomitant]
     Active Substance: MIRABEGRON
     Indication: Penile pain
     Route: 065
     Dates: start: 20210809
  22. DENOSUMAB [Concomitant]
     Active Substance: DENOSUMAB
     Route: 065
     Dates: start: 20220329
  23. ERGOCALCIFEROL [Concomitant]
     Active Substance: ERGOCALCIFEROL
     Route: 065
     Dates: start: 20220324
  24. CALCIUM [Concomitant]
     Active Substance: CALCIUM
     Route: 065
     Dates: start: 20220324
  25. DEXAMETHASONE [Concomitant]
     Active Substance: DEXAMETHASONE
     Route: 065
     Dates: start: 20220324
  26. FLUDROCORTISONE [Concomitant]
     Active Substance: FLUDROCORTISONE
     Route: 065
     Dates: start: 20220324
  27. MIDODRINE [Concomitant]
     Active Substance: MIDODRINE
     Indication: Labile blood pressure
     Route: 065
     Dates: start: 20220324
  28. MORNIFLUMATE [Concomitant]
     Active Substance: MORNIFLUMATE
     Indication: Nephrolithiasis
     Route: 065
     Dates: start: 20220624

REACTIONS (1)
  - Pathological fracture [Recovered/Resolved]

NARRATIVE: CASE EVENT DATE: 20211109
